FAERS Safety Report 6027917-9 (Version None)
Quarter: 2009Q1

REPORT INFORMATION
  Report Type: 
  Country: None (occurrence: None)
  Receive Date: 20090105
  Receipt Date: 20081227
  Transmission Date: 20090719
  Serious: Yes (Hospitalization)
  Sender: FDA-Public Use
  Company Number: US-AMGEN-QUU325898

PATIENT
  Sex: Male

DRUGS (1)
  1. ENBREL [Suspect]
     Indication: ANKYLOSING SPONDYLITIS
     Route: 058

REACTIONS (7)
  - ANKYLOSING SPONDYLITIS [None]
  - FALL [None]
  - NASOPHARYNGITIS [None]
  - OPEN WOUND [None]
  - PNEUMONIA [None]
  - SPINAL FRACTURE [None]
  - WOUND INFECTION [None]
